FAERS Safety Report 10446072 (Version 1)
Quarter: 2014Q3

REPORT INFORMATION
  Report Type: Spontaneous
  Country: FR (occurrence: FR)
  Receive Date: 20140910
  Receipt Date: 20140910
  Transmission Date: 20150326
  Serious: Yes (Other)
  Sender: FDA-Public Use
  Company Number: PHHY2014FR114776

PATIENT
  Age: 70 Year
  Sex: Male

DRUGS (17)
  1. PACLITAXEL. [Suspect]
     Active Substance: PACLITAXEL
     Indication: LUNG CANCER METASTATIC
  2. PACLITAXEL. [Suspect]
     Active Substance: PACLITAXEL
     Indication: METASTASES TO LYMPH NODES
  3. BEVACIZUMAB [Suspect]
     Active Substance: BEVACIZUMAB
     Indication: METASTASES TO CENTRAL NERVOUS SYSTEM
  4. CISPLATIN. [Concomitant]
     Active Substance: CISPLATIN
     Indication: METASTASES TO LYMPH NODES
  5. PACLITAXEL. [Suspect]
     Active Substance: PACLITAXEL
     Indication: MALIGNANT NEOPLASM PROGRESSION
  6. BEVACIZUMAB [Suspect]
     Active Substance: BEVACIZUMAB
     Indication: METASTASES TO LYMPH NODES
  7. PEMETREXED [Concomitant]
     Active Substance: PEMETREXED
     Indication: LUNG CANCER METASTATIC
  8. BEVACIZUMAB [Suspect]
     Active Substance: BEVACIZUMAB
     Indication: LUNG CANCER METASTATIC
  9. CISPLATIN. [Concomitant]
     Active Substance: CISPLATIN
     Indication: METASTASES TO CENTRAL NERVOUS SYSTEM
  10. ERLOTINIB [Concomitant]
     Active Substance: ERLOTINIB
     Indication: METASTASES TO CENTRAL NERVOUS SYSTEM
  11. PACLITAXEL. [Suspect]
     Active Substance: PACLITAXEL
     Indication: METASTASES TO CENTRAL NERVOUS SYSTEM
  12. CISPLATIN. [Concomitant]
     Active Substance: CISPLATIN
     Indication: LUNG CANCER METASTATIC
  13. PEMETREXED [Concomitant]
     Active Substance: PEMETREXED
     Indication: METASTASES TO LYMPH NODES
  14. PEMETREXED [Concomitant]
     Active Substance: PEMETREXED
     Indication: METASTASES TO CENTRAL NERVOUS SYSTEM
  15. ERLOTINIB [Concomitant]
     Active Substance: ERLOTINIB
     Indication: LUNG CANCER METASTATIC
  16. ERLOTINIB [Concomitant]
     Active Substance: ERLOTINIB
     Indication: METASTASES TO LYMPH NODES
  17. BEVACIZUMAB [Suspect]
     Active Substance: BEVACIZUMAB
     Indication: MALIGNANT NEOPLASM PROGRESSION

REACTIONS (8)
  - Laryngeal oedema [Unknown]
  - Vocal cord inflammation [Unknown]
  - Dysphonia [Unknown]
  - Xeroderma [Unknown]
  - Aphonia [Unknown]
  - Scab [Unknown]
  - Stomatitis [Unknown]
  - Epistaxis [Unknown]
